FAERS Safety Report 9735704 (Version 4)
Quarter: 2014Q2

REPORT INFORMATION
  Report Type: Spontaneous
  Country: IE (occurrence: IE)
  Receive Date: 20131206
  Receipt Date: 20140411
  Transmission Date: 20141212
  Serious: Yes (Other)
  Sender: FDA-Public Use
  Company Number: PHFR2013IE003162

PATIENT
  Age: 57 Year
  Sex: Male

DRUGS (5)
  1. CLOZARIL [Suspect]
     Indication: SCHIZOPHRENIA
     Dosage: 200 MG, (75 MG MORNING AND 125 MG NIGHT)
     Route: 048
     Dates: start: 20130513, end: 20130531
  2. LEVOTHYROXINE [Concomitant]
  3. SERTRALINE [Concomitant]
     Dosage: 150 MG, IN THE MORNING
  4. LORAZEPAM [Concomitant]
     Dosage: 1 MG, QD
  5. QUETIAPINE XR [Concomitant]
     Dosage: REDUCING DOSE

REACTIONS (7)
  - C-reactive protein increased [Recovered/Resolved]
  - Chest pain [Recovered/Resolved]
  - Pyrexia [Recovered/Resolved]
  - Mental impairment [Unknown]
  - Platelet count abnormal [Recovered/Resolved]
  - Asthenia [Recovered/Resolved]
  - Chest discomfort [Recovered/Resolved]
